FAERS Safety Report 16563263 (Version 1)
Quarter: 2019Q3

REPORT INFORMATION
  Report Type: Spontaneous
  Country: FR (occurrence: FR)
  Receive Date: 20190711
  Receipt Date: 20190711
  Transmission Date: 20191004
  Serious: Yes (Death, Congenital Anomaly)
  Sender: FDA-Public Use
  Company Number: PHHY2019FR159009

PATIENT

DRUGS (6)
  1. PREDNISONE. [Suspect]
     Active Substance: PREDNISONE
     Indication: FOETAL EXPOSURE DURING PREGNANCY
     Dosage: UNK
     Route: 064
  2. ENDOXAN [Suspect]
     Active Substance: CYCLOPHOSPHAMIDE
     Indication: FOETAL EXPOSURE DURING PREGNANCY
     Dosage: 1160 MG, Q3W
     Route: 064
     Dates: start: 20180316, end: 20180629
  3. CIPROFLOXACINE ACCORD [Suspect]
     Active Substance: CIPROFLOXACIN HYDROCHLORIDE
     Indication: FOETAL EXPOSURE DURING PREGNANCY
     Dosage: UNK
     Route: 064
  4. DOXORUBICINE ACCORD [Suspect]
     Active Substance: DOXORUBICIN
     Indication: FOETAL EXPOSURE DURING PREGNANCY
     Dosage: 78 MG, Q3W
     Route: 064
     Dates: start: 20180316, end: 20180629
  5. VINCRISTINE TEVA [Suspect]
     Active Substance: VINCRISTINE
     Indication: FOETAL EXPOSURE DURING PREGNANCY
     Dosage: 2 MG, Q3W
     Route: 064
     Dates: start: 20180316, end: 20180629
  6. METHOTREXATE (METHOTREXATE SODIUM) [Suspect]
     Active Substance: METHOTREXATE SODIUM
     Indication: FOETAL EXPOSURE DURING PREGNANCY
     Dosage: 15 MG, UNK
     Route: 064

REACTIONS (1)
  - Congenital amputation [Fatal]

NARRATIVE: CASE EVENT DATE: 201905
